FAERS Safety Report 16391594 (Version 1)
Quarter: 2019Q2

REPORT INFORMATION
  Report Type: Spontaneous
  Country: US (occurrence: US)
  Receive Date: 20190605
  Receipt Date: 20190605
  Transmission Date: 20190711
  Serious: No
  Sender: FDA-Public Use
  Company Number: US-GLAXOSMITHKLINE-US2019098364

PATIENT
  Sex: Male

DRUGS (2)
  1. COREG [Suspect]
     Active Substance: CARVEDILOL
     Dosage: 25 MG, Z
  2. COREG [Suspect]
     Active Substance: CARVEDILOL
     Indication: PRODUCT USED FOR UNKNOWN INDICATION
     Dosage: 6.25 MG, BID
     Route: 048

REACTIONS (2)
  - Product availability issue [Unknown]
  - Wrong technique in product usage process [Unknown]
